FAERS Safety Report 17700728 (Version 2)
Quarter: 2020Q2

REPORT INFORMATION
  Report Type: Spontaneous
  Country: ES (occurrence: ES)
  Receive Date: 20200423
  Receipt Date: 20200613
  Transmission Date: 20200714
  Serious: Yes (Hospitalization, Other)
  Sender: FDA-Public Use
  Company Number: ES-AUROBINDO-AUR-APL-2020-020161

PATIENT
  Age: 68 Year
  Sex: Female
  Weight: 75 kg

DRUGS (20)
  1. TRASTUZUMAB. [Suspect]
     Active Substance: TRASTUZUMAB
     Dosage: UNK
     Route: 058
     Dates: start: 20131022
  2. RANITIDINE. [Concomitant]
     Active Substance: RANITIDINE
     Indication: PRODUCT USED FOR UNKNOWN INDICATION
     Dosage: 300 MILLIGRAM
     Route: 042
     Dates: start: 201211
  3. DOCETAXEL. [Suspect]
     Active Substance: DOCETAXEL
     Indication: PRODUCT USED FOR UNKNOWN INDICATION
     Dosage: UNK UNK, ONCE A DAY
     Route: 065
     Dates: start: 20130701
  4. TRASTUZUMAB. [Suspect]
     Active Substance: TRASTUZUMAB
     Dosage: 600 MILLIGRAM, 3 WEEKS
     Route: 058
     Dates: start: 20130701
  5. NEUPOGEN [Concomitant]
     Active Substance: FILGRASTIM
     Dosage: 6000 MIU/L
     Route: 065
     Dates: start: 20130820
  6. METFORMIN FILM-COATED TABLET [Suspect]
     Active Substance: METFORMIN HYDROCHLORIDE
     Indication: DIABETES MELLITUS
     Dosage: 850 MILLIGRAM
     Route: 048
     Dates: start: 201211
  7. CARBOPLATIN. [Suspect]
     Active Substance: CARBOPLATIN
     Dosage: UNK, ONCE A DAY
     Route: 065
     Dates: start: 20130701, end: 20130729
  8. NEUPOGEN [Concomitant]
     Active Substance: FILGRASTIM
     Indication: PRODUCT USED FOR UNKNOWN INDICATION
     Dosage: 6000/U/ML
     Route: 065
     Dates: start: 20130805, end: 20130807
  9. TRASTUZUMAB. [Suspect]
     Active Substance: TRASTUZUMAB
     Indication: HER2 POSITIVE BREAST CANCER
     Dosage: UNK
     Route: 065
  10. NEUPOGEN [Concomitant]
     Active Substance: FILGRASTIM
     Dosage: 150000 INTERNATIONAL UNIT PER MILLILITRE
     Route: 065
     Dates: start: 20130819, end: 20130820
  11. PANTOPRAZOL [Concomitant]
     Active Substance: PANTOPRAZOLE SODIUM
     Indication: PRODUCT USED FOR UNKNOWN INDICATION
     Dosage: UNK
     Route: 065
     Dates: start: 201211
  12. FOSFOMYCINE [Suspect]
     Active Substance: FOSFOMYCIN
     Indication: PRODUCT USED FOR UNKNOWN INDICATION
     Dosage: 1 GRAM, ONCE A DAY (1 G EVERY 2 DAYS (1 G/ 24 HR))
     Route: 065
     Dates: start: 20130704
  13. FERROUS SULFATE. [Concomitant]
     Active Substance: FERROUS SULFATE
     Indication: PRODUCT USED FOR UNKNOWN INDICATION
     Dosage: UNK
     Route: 065
     Dates: start: 20130729
  14. NITROFURANTOINA [Concomitant]
     Active Substance: NITROFURANTOIN
     Indication: PRODUCT USED FOR UNKNOWN INDICATION
     Dosage: UNK
     Route: 065
     Dates: start: 20130805
  15. CARBOPLATIN. [Suspect]
     Active Substance: CARBOPLATIN
     Dosage: UNK
     Route: 065
     Dates: start: 20130819
  16. TRASTUZUMAB. [Suspect]
     Active Substance: TRASTUZUMAB
     Dosage: UNK
     Route: 058
     Dates: start: 20130729
  17. DOMPERIDONE [Concomitant]
     Active Substance: DOMPERIDONE
     Indication: PRODUCT USED FOR UNKNOWN INDICATION
     Dosage: 20 MILLIGRAM PER MILLILITRE
     Route: 065
     Dates: start: 20130805
  18. SIMVASTATIN. [Concomitant]
     Active Substance: SIMVASTATIN
     Indication: PRODUCT USED FOR UNKNOWN INDICATION
     Dosage: 40 MILLIGRAM
     Route: 065
     Dates: start: 201211
  19. CARBOPLATIN. [Suspect]
     Active Substance: CARBOPLATIN
     Indication: PRODUCT USED FOR UNKNOWN INDICATION
     Dosage: UNK
     Route: 065
     Dates: start: 20130729
  20. PARACETAMOL [Concomitant]
     Active Substance: ACETAMINOPHEN
     Indication: PRODUCT USED FOR UNKNOWN INDICATION
     Dosage: 500 MILLIGRAM
     Route: 065
     Dates: start: 201211

REACTIONS (4)
  - Acute kidney injury [Recovered/Resolved]
  - Blood creatinine decreased [Unknown]
  - Ejection fraction decreased [Unknown]
  - Diarrhoea [Recovered/Resolved]

NARRATIVE: CASE EVENT DATE: 20130706
